FAERS Safety Report 6220018-6 (Version None)
Quarter: 2009Q2

REPORT INFORMATION
  Report Type: 
  Country: None (occurrence: None)
  Receive Date: 20090609
  Receipt Date: 20090602
  Transmission Date: 20091009
  Serious: Yes (Other)
  Sender: FDA-Public Use
  Company Number: US-JNJFOC-20090601550

PATIENT
  Age: 60 Year
  Sex: Female
  Weight: 81.19 kg

DRUGS (5)
  1. EXTRA STRENGTH TYLENOL [Suspect]
     Indication: BACK PAIN
     Route: 048
  2. SIMPLY SLEEP NIGHTTIME [Suspect]
     Indication: INSOMNIA
     Dosage: 50 MG 3-4 TIMES A WEEK
     Route: 048
  3. ZOCOR [Concomitant]
     Indication: BLOOD CHOLESTEROL INCREASED
  4. LOVAZA [Concomitant]
     Indication: BLOOD TRIGLYCERIDES INCREASED
  5. LASIX [Concomitant]
     Indication: FLUID RETENTION

REACTIONS (1)
  - NEPHRITIS [None]
